FAERS Safety Report 9663521 (Version 1)
Quarter: 2013Q4

REPORT INFORMATION
  Report Type: Spontaneous
  Country: US (occurrence: US)
  Receive Date: 20131101
  Receipt Date: 20131101
  Transmission Date: 20140711
  Serious: No
  Sender: FDA-Public Use
  Company Number: US-PFIZER INC-2013311884

PATIENT
  Age: 82 Year
  Sex: Female
  Weight: 64.4 kg

DRUGS (5)
  1. LYRICA [Suspect]
     Dosage: 75 MG, 1X/DAY
     Dates: start: 201309, end: 2013
  2. PHENOBARBITAL [Concomitant]
     Dosage: UNK, 2X/DAY
  3. PHENYTOIN [Concomitant]
     Dosage: UNK, 2X/DAY
  4. LOVASTATIN [Concomitant]
     Dosage: UNK, 1X/DAY
  5. LISINOPRIL [Concomitant]
     Dosage: UNK, 1X/DAY

REACTIONS (2)
  - Dizziness [Unknown]
  - Fall [Unknown]
